FAERS Safety Report 9761018 (Version 1)
Quarter: 2013Q4

REPORT INFORMATION
  Report Type: Spontaneous
  Country: US (occurrence: None)
  Receive Date: 20131212
  Receipt Date: 20131212
  Transmission Date: 20140711
  Serious: Yes (Other)
  Sender: FDA-Public Use
  Company Number: 2013P1021564

PATIENT
  Age: 26 Year
  Sex: Male

DRUGS (4)
  1. METHIMAZOLE [Suspect]
     Indication: HYPERTHYROIDISM
     Dates: start: 20120620, end: 20120925
  2. SSKI (POTASSIUM IODIDE) [Concomitant]
  3. PROPRANOLOL [Concomitant]
  4. PREDNISONE [Concomitant]

REACTIONS (3)
  - Goitre [None]
  - Dysphagia [None]
  - Obstructive airways disorder [None]
